FAERS Safety Report 6160392 (Version 18)
Quarter: 2012Q4

REPORT INFORMATION
  Report Type: 
  Country: US (occurrence: US)
  Receive Date: 20061102
  Receipt Date: 20121129
  Transmission Date: 20130627
  Serious: Yes (Hospitalization, Other)
  Sender: FDA-Public Use
  Company Number: US-ROCHE-468468

PATIENT
  Age: 26 Year
  Sex: Male
  Weight: 95.3 kg

DRUGS (1)
  1. ACCUTANE [Suspect]
     Indication: DERMAL CYST
     Dosage: START OF THERAPY IN THE LATE 1980^S / EARLY 1990^S.
     Route: 065

REACTIONS (20)
  - Crohn^s disease [Unknown]
  - Small intestinal obstruction [Recovering/Resolving]
  - Inflammatory bowel disease [Unknown]
  - Hypothyroidism [Unknown]
  - Colitis [Unknown]
  - Crohn^s disease [Unknown]
  - Benign prostatic hyperplasia [Unknown]
  - Intestinal perforation [Recovered/Resolved]
  - Psoriasis [Recovering/Resolving]
  - Lip dry [Unknown]
  - Arthritis [Unknown]
  - Anxiety [Unknown]
  - Blood cholesterol increased [Unknown]
  - Anaemia [Unknown]
  - Herpes zoster [Unknown]
  - Irritable bowel syndrome [Unknown]
  - Muscle spasms [Unknown]
  - Pharyngitis [Unknown]
  - Iron deficiency anaemia [Unknown]
  - Haemorrhoids [Unknown]
